FAERS Safety Report 13452721 (Version 1)
Quarter: 2017Q2

REPORT INFORMATION
  Report Type: Spontaneous
  Country: US (occurrence: US)
  Receive Date: 20170418
  Receipt Date: 20170418
  Transmission Date: 20170830
  Serious: No
  Sender: FDA-Public Use
  Company Number: US-GLAXOSMITHKLINE-US2017053367

PATIENT
  Age: 70 Year
  Sex: Female

DRUGS (1)
  1. VOLTAREN [Suspect]
     Active Substance: DICLOFENAC SODIUM
     Indication: NEUROMA
     Dosage: UNK

REACTIONS (4)
  - Product use in unapproved indication [Unknown]
  - Contraindicated product administered [Unknown]
  - Wrong technique in product usage process [Unknown]
  - Off label use [Unknown]
